FAERS Safety Report 5278271-1 (Version None)
Quarter: 2007Q1

REPORT INFORMATION
  Report Type: 
  Country: None (occurrence: None)
  Receive Date: 20070328
  Receipt Date: 20070315
  Transmission Date: 20070707
  Serious: Yes (Hospitalization, Other)
  Sender: FDA-Public Use
  Company Number: PHBS2007EG04637

PATIENT
  Age: 51 Year
  Sex: Male
  Weight: 100 kg

DRUGS (1)
  1. VALSARTAN AND HYDROCHLOROTHIAZIDE [Suspect]
     Indication: HYPERTENSION
     Dosage: 160/25MG/DAY
     Route: 048
     Dates: start: 20070224, end: 20070224

REACTIONS (6)
  - CHEST PAIN [None]
  - DRUG ERUPTION [None]
  - EXTRASYSTOLES [None]
  - HYPERSENSITIVITY [None]
  - HYPERTENSION [None]
  - SKIN EXFOLIATION [None]
